FAERS Safety Report 7877470-X (Version None)
Quarter: 2011Q4

REPORT INFORMATION
  Report Type: 
  Country: None (occurrence: None)
  Receive Date: 20111031
  Receipt Date: 20111025
  Transmission Date: 20120403
  Serious: Yes (Other)
  Sender: FDA-Public Use
  Company Number: US-PFIZER INC-2009191220

PATIENT
  Sex: Female

DRUGS (6)
  1. DETROL LA [Interacting]
     Indication: HYPERTONIC BLADDER
     Dates: start: 20090201
  2. BRETHINE [Concomitant]
     Dosage: UNK
  3. AMLODIPINE BESYLATE [Suspect]
     Dates: start: 20050501
  4. PLAVIX [Interacting]
     Dosage: 75 MG, 1X/DAY
     Dates: start: 20050501
  5. FELDENE [Concomitant]
  6. DIPHENHYDRAMINE [Concomitant]
     Dosage: UNK

REACTIONS (16)
  - SCIATIC NERVE INJURY [None]
  - DYSGEUSIA [None]
  - BLOOD DISORDER [None]
  - HYPOAESTHESIA [None]
  - VISUAL IMPAIRMENT [None]
  - SWOLLEN TONGUE [None]
  - DRY MOUTH [None]
  - CARDIOVASCULAR DISORDER [None]
  - DYSPEPSIA [None]
  - ROAD TRAFFIC ACCIDENT [None]
  - OEDEMA PERIPHERAL [None]
  - CONTUSION [None]
  - WEIGHT INCREASED [None]
  - DIZZINESS [None]
  - DRUG INEFFECTIVE [None]
  - DRUG INTERACTION [None]
